FAERS Safety Report 15771544 (Version 4)
Quarter: 2020Q3

REPORT INFORMATION
  Report Type: Report from Study
  Country: US (occurrence: US)
  Receive Date: 20181228
  Receipt Date: 20200106
  Transmission Date: 20201105
  Serious: Yes (Hospitalization)
  Sender: FDA-Public Use
  Company Number: US-PFIZER INC-2018529231

PATIENT
  Age: 19 Year
  Sex: Male
  Weight: 62 kg

DRUGS (6)
  1. TEMOZOLOMIDE. [Suspect]
     Active Substance: TEMOZOLOMIDE
     Indication: EWING^S SARCOMA
     Dosage: 20 MG, CYCLIC (DAYS 2?6 EVERY 3 WEEKS)
     Route: 048
     Dates: start: 20181130
  2. SEPTRA [Concomitant]
     Active Substance: SULFAMETHOXAZOLE\TRIMETHOPRIM
     Indication: ANTIFUNGAL PROPHYLAXIS
     Dosage: 1.5 TAB, DAILY MON, TUES, WEDS
     Dates: start: 20181119
  3. TALAZOPARIB. [Suspect]
     Active Substance: TALAZOPARIB
     Indication: EWING^S SARCOMA
     Dosage: 500 MCG/DAY BID ON DAY 1, THEN 1000 MCG DAILY ON DAYS 2?6 EVERY 3 WEEKS
     Route: 048
     Dates: start: 20181129, end: 20181129
  4. IRINOTECAN HCL [Suspect]
     Active Substance: IRINOTECAN HYDROCHLORIDE
     Indication: EWING^S SARCOMA
     Dosage: 70 MG, CYCLIC (DAYS 2?6 EVERY 3 WEEKS)
     Route: 042
     Dates: start: 20181130
  5. CEFIXIME. [Concomitant]
     Active Substance: CEFIXIME
     Indication: PROPHYLAXIS AGAINST DIARRHOEA
     Dosage: 400 MG, DAILY
     Dates: start: 20181129
  6. TALAZOPARIB. [Suspect]
     Active Substance: TALAZOPARIB
     Dosage: 500 MCG/DAY BID ON DAY 1, THEN 1000 MCG DAILY ON DAYS 2?6 EVERY 3 WEEKS
     Route: 048
     Dates: start: 20181130

REACTIONS (2)
  - Febrile neutropenia [Recovered/Resolved]
  - Colitis [Recovered/Resolved]

NARRATIVE: CASE EVENT DATE: 20181209
